FAERS Safety Report 11587651 (Version 1)
Quarter: 2015Q4

REPORT INFORMATION
  Report Type: Report from Study
  Country: US (occurrence: US)
  Receive Date: 20151001
  Receipt Date: 20151001
  Transmission Date: 20160304
  Serious: Yes (Death)
  Sender: FDA-Public Use
  Company Number: US-MYLANLABS-2015M1025971

PATIENT
  Age: 36 Year
  Sex: Female

DRUGS (24)
  1. IBUPROFEN. [Concomitant]
     Active Substance: IBUPROFEN
  2. REGLAN [Concomitant]
     Active Substance: METOCLOPRAMIDE HYDROCHLORIDE
  3. EFFEXOR [Concomitant]
     Active Substance: VENLAFAXINE HYDROCHLORIDE
  4. ESTROGEN [Concomitant]
     Active Substance: ESTRONE\SUS SCROFA OVARY
  5. PREVACID [Concomitant]
     Active Substance: LANSOPRAZOLE
  6. DEPO-PROVERA [Concomitant]
     Active Substance: MEDROXYPROGESTERONE ACETATE
  7. MIRALAX [Concomitant]
     Active Substance: POLYETHYLENE GLYCOL 3350
  8. SENOKOT [Concomitant]
     Active Substance: SENNOSIDES
  9. CONCERTA [Concomitant]
     Active Substance: METHYLPHENIDATE HYDROCHLORIDE
  10. LYRICA [Concomitant]
     Active Substance: PREGABALIN
  11. CLOZAPINE TABLETS, USP [Suspect]
     Active Substance: CLOZAPINE
     Dosage: 700 MG, HS
     Route: 048
  12. BENZTROPINE [Concomitant]
     Active Substance: BENZTROPINE
  13. AMITIZA [Concomitant]
     Active Substance: LUBIPROSTONE
  14. FERREX [Concomitant]
  15. TRAZODONE [Concomitant]
     Active Substance: TRAZODONE HYDROCHLORIDE
  16. DICYCLOMINE                        /00068601/ [Concomitant]
     Active Substance: DICYCLOMINE HYDROCHLORIDE
  17. MYRBETRIQ [Concomitant]
     Active Substance: MIRABEGRON
  18. NORETHINDRONE                      /00044901/ [Concomitant]
     Active Substance: NORETHINDRONE
  19. BUPROPION. [Concomitant]
     Active Substance: BUPROPION
  20. CLONAZEPAM. [Concomitant]
     Active Substance: CLONAZEPAM
  21. DOCQLACE [Concomitant]
     Active Substance: DOCUSATE SODIUM
  22. MOBIC [Concomitant]
     Active Substance: MELOXICAM
  23. TRAMADOL. [Concomitant]
     Active Substance: TRAMADOL
  24. CARAFATE [Concomitant]
     Active Substance: SUCRALFATE

REACTIONS (2)
  - Death [Fatal]
  - Vaginal haemorrhage [Unknown]

NARRATIVE: CASE EVENT DATE: 20150617
